FAERS Safety Report 9361655 (Version 1)
Quarter: 2013Q2

REPORT INFORMATION
  Report Type: Spontaneous
  Country: FR (occurrence: FR)
  Receive Date: 20130621
  Receipt Date: 20130621
  Transmission Date: 20140414
  Serious: Yes (Other)
  Sender: FDA-Public Use
  Company Number: FR-PFIZER INC-2013184486

PATIENT
  Age: 28 Year
  Sex: Female

DRUGS (2)
  1. CHAMPIX [Suspect]
     Dosage: 0.5 MG, UNK
     Dates: start: 201306, end: 20130615
  2. PRONTALGINE [Concomitant]
     Dosage: 2-3 TABLETS DAILY

REACTIONS (8)
  - Suicidal ideation [Recovering/Resolving]
  - Violence-related symptom [Recovering/Resolving]
  - Agitation [Recovering/Resolving]
  - Feeling abnormal [Recovering/Resolving]
  - Anxiety [Recovering/Resolving]
  - Sedation [Recovering/Resolving]
  - Palpitations [Recovering/Resolving]
  - Malaise [Recovered/Resolved]
